FAERS Safety Report 21441742 (Version 2)
Quarter: 2023Q2

REPORT INFORMATION
  Report Type: Spontaneous
  Country: US (occurrence: US)
  Receive Date: 20221011
  Receipt Date: 20230626
  Transmission Date: 20230721
  Serious: No
  Sender: FDA-Public Use
  Company Number: US-SA-SAC20221010001222

PATIENT
  Age: 68 Year
  Sex: Male

DRUGS (1)
  1. JEVTANA [Suspect]
     Active Substance: CABAZITAXEL
     Indication: Bladder neoplasm
     Dosage: 60MG/1.5ML,EVERY OTHER WEEK
     Route: 043
     Dates: start: 20220914

REACTIONS (1)
  - Weight increased [Unknown]
